FAERS Safety Report 24273731 (Version 1)
Quarter: 2024Q3

REPORT INFORMATION
  Report Type: Spontaneous
  Country: US (occurrence: US)
  Receive Date: 20240902
  Receipt Date: 20240902
  Transmission Date: 20241017
  Serious: Yes (Other)
  Sender: ASTELLAS
  Company Number: US-ASTELLAS-2023US028220

PATIENT
  Age: 77 Year
  Sex: Male

DRUGS (2)
  1. XTANDI [Suspect]
     Active Substance: ENZALUTAMIDE
     Indication: Prostate cancer metastatic
     Dosage: UNK UNK, UNKNOWN FREQ.
     Route: 048
  2. XTANDI [Suspect]
     Active Substance: ENZALUTAMIDE
     Dosage: UNK UNK, UNKNOWN FREQ. (REDUCED DOSE)
     Route: 048

REACTIONS (2)
  - Dementia [Unknown]
  - Dysphagia [Unknown]
